FAERS Safety Report 5455945-0 (Version None)
Quarter: 2007Q3

REPORT INFORMATION
  Report Type: 
  Country: None (occurrence: None)
  Receive Date: 20070918
  Receipt Date: 20070228
  Transmission Date: 20080115
  Serious: Yes (Hospitalization, Disabling)
  Sender: FDA-Public Use
  Company Number: US-ASTRAZENECA-2006UW23885

PATIENT
  Age: 39 Year
  Sex: Female
  Weight: 81.8 kg

DRUGS (2)
  1. SEROQUEL [Suspect]
     Indication: DEPRESSION
     Dosage: 100 -200 MG
     Route: 048
     Dates: start: 20011201, end: 20030801
  2. ZYPREXA [Suspect]
     Dates: start: 20030101, end: 20050101

REACTIONS (2)
  - DEPRESSION [None]
  - TYPE 2 DIABETES MELLITUS [None]
